FAERS Safety Report 20638176 (Version 1)
Quarter: 2022Q1

REPORT INFORMATION
  Report Type: Spontaneous
  Country: FR (occurrence: FR)
  Receive Date: 20220325
  Receipt Date: 20220325
  Transmission Date: 20220424
  Serious: Yes (Death, Life-Threatening, Hospitalization, Other)
  Sender: FDA-Public Use
  Company Number: FR-ELI_LILLY_AND_COMPANY-FR202203006719

PATIENT
  Age: 70 Year
  Weight: 76 kg

DRUGS (6)
  1. ABEMACICLIB [Suspect]
     Active Substance: ABEMACICLIB
     Indication: Breast cancer
     Dosage: UNK, UNKNOWN
     Route: 048
     Dates: start: 20220217
  2. EXEMESTANE [Concomitant]
     Active Substance: EXEMESTANE
     Indication: Breast cancer
     Dosage: UNK, UNKNOWN
     Route: 048
     Dates: start: 20220217
  3. CAPECITABINE [Concomitant]
     Active Substance: CAPECITABINE
     Indication: Product used for unknown indication
     Dosage: 3000 MG, UNKNOWN
     Route: 048
     Dates: start: 20211015, end: 20220216
  4. LEVOTHYROXINE [Concomitant]
     Active Substance: LEVOTHYROXINE
     Indication: Hypothyroidism
     Dosage: 100 UG, DAILY
     Route: 065
  5. TRAMADOL [Concomitant]
     Active Substance: TRAMADOL
     Indication: Product used for unknown indication
     Dosage: 150 MG, BID
     Route: 065
  6. PANTOPRAZOLE [Concomitant]
     Active Substance: PANTOPRAZOLE
     Indication: Product used for unknown indication
     Dosage: 20 MG, DAILY
     Route: 065

REACTIONS (30)
  - Lung disorder [Fatal]
  - Sepsis [Fatal]
  - Acute respiratory distress syndrome [Unknown]
  - Immune-mediated lung disease [Unknown]
  - Pleural disorder [Unknown]
  - Pulmonary embolism [Unknown]
  - Pneumonia staphylococcal [Unknown]
  - Tachycardia [Unknown]
  - Mean cell volume increased [Unknown]
  - Prothrombin time ratio decreased [Unknown]
  - Blood fibrinogen increased [Unknown]
  - Blood pH increased [Unknown]
  - Carbon dioxide abnormal [Unknown]
  - Blood bicarbonate increased [Unknown]
  - Base excess increased [Unknown]
  - Blood phosphorus decreased [Unknown]
  - Lipase decreased [Unknown]
  - Gamma-glutamyltransferase increased [Unknown]
  - Blood alkaline phosphatase increased [Unknown]
  - Blood lactate dehydrogenase increased [Unknown]
  - Troponin increased [Unknown]
  - Blood albumin decreased [Unknown]
  - Prealbumin decreased [Unknown]
  - Alpha 1 globulin increased [Unknown]
  - Alpha 2 globulin increased [Unknown]
  - Beta globulin increased [Unknown]
  - Vitamin D decreased [Unknown]
  - Lymphocyte count decreased [Unknown]
  - Platelet count decreased [Unknown]
  - Red blood cell count decreased [Unknown]

NARRATIVE: CASE EVENT DATE: 20220225
